FAERS Safety Report 4476178-0 (Version None)
Quarter: 2004Q3

REPORT INFORMATION
  Report Type: 
  Country: None (occurrence: None)
  Receive Date: 20040923
  Receipt Date: 20040810
  Transmission Date: 20050211
  Serious: No
  Sender: FDA-Public Use
  Company Number: USA040875135

PATIENT
  Age: 59 Year
  Weight: 68 kg

DRUGS (5)
  1. FORTEO [Suspect]
     Indication: BONE DISORDER
     Dosage: 20 UG DAY
     Dates: start: 20040201
  2. FORTEO [Suspect]
     Indication: OSTEOPOROSIS
     Dosage: 20 UG DAY
     Dates: start: 20040201
  3. AMITRIPTYLINE HCL [Concomitant]
  4. TYLENOL W/ CODEINE NO. 3 [Concomitant]
  5. CALCIUM [Concomitant]

REACTIONS (5)
  - BONE PAIN [None]
  - FEELING ABNORMAL [None]
  - LOCALISED OSTEOARTHRITIS [None]
  - PRURITUS [None]
  - WEIGHT INCREASED [None]
